FAERS Safety Report 12235087 (Version 4)
Quarter: 2016Q2

REPORT INFORMATION
  Report Type: Spontaneous
  Country: US (occurrence: US)
  Receive Date: 20160404
  Receipt Date: 20160516
  Transmission Date: 20160815
  Serious: Yes (Hospitalization)
  Sender: FDA-Public Use
  Company Number: US-ACTELION PHARMACEUTICALS US, INC.-A-US2016-132948

PATIENT
  Age: 68 Year
  Sex: Male

DRUGS (3)
  1. VELETRI [Suspect]
     Active Substance: EPOPROSTENOL
     Indication: PULMONARY HYPERTENSION
     Dosage: 17 NG/KG, PER MIN
     Route: 042
     Dates: start: 20160315
  2. SILDENAFIL. [Concomitant]
     Active Substance: SILDENAFIL
  3. REMODULIN [Suspect]
     Active Substance: TREPROSTINIL
     Indication: PRODUCT USED FOR UNKNOWN INDICATION
     Route: 065

REACTIONS (9)
  - Fluid overload [Unknown]
  - Dysarthria [Unknown]
  - Drug dose omission [Unknown]
  - Ascites [Unknown]
  - Unevaluable event [Unknown]
  - Diarrhoea [Unknown]
  - Weight increased [Unknown]
  - Oedema [Unknown]
  - Anal incontinence [Unknown]

NARRATIVE: CASE EVENT DATE: 20160503
